FAERS Safety Report 7904705-7 (Version None)
Quarter: 2011Q4

REPORT INFORMATION
  Report Type: 
  Country: None (occurrence: None)
  Receive Date: 20111109
  Receipt Date: 20111031
  Transmission Date: 20120403
  Serious: Yes (Other)
  Sender: FDA-Public Use
  Company Number: JP-GLAXOSMITHKLINE-B0760593A

PATIENT
  Sex: Female

DRUGS (1)
  1. ZOVIRAX [Suspect]
     Indication: ORAL HERPES
     Route: 048

REACTIONS (12)
  - PROTEINURIA [None]
  - RENAL IMPAIRMENT [None]
  - PROTEIN URINE PRESENT [None]
  - URINE ABNORMALITY [None]
  - SPECIFIC GRAVITY URINE DECREASED [None]
  - TUBULOINTERSTITIAL NEPHRITIS [None]
  - RENAL FAILURE ACUTE [None]
  - CONGENITAL CYSTIC KIDNEY DISEASE [None]
  - HYPERKALAEMIA [None]
  - BETA 2 MICROGLOBULIN URINE INCREASED [None]
  - SHOCK [None]
  - VENTRICULAR FIBRILLATION [None]
